FAERS Safety Report 25748729 (Version 1)
Quarter: 2025Q3

REPORT INFORMATION
  Report Type: Spontaneous
  Country: US (occurrence: US)
  Receive Date: 20250902
  Receipt Date: 20250902
  Transmission Date: 20251021
  Serious: No
  Sender: ALEXION PHARMACEUTICALS
  Company Number: US-AstraZeneca-CH-00940735A

PATIENT
  Sex: Male

DRUGS (3)
  1. WAINUA [Suspect]
     Active Substance: EPLONTERSEN
     Indication: Amyloidosis
  2. VITAMINS [Concomitant]
     Active Substance: VITAMINS
     Route: 065
  3. VITAMIN A [Concomitant]
     Active Substance: VITAMIN A
     Route: 065

REACTIONS (2)
  - Pruritus [Unknown]
  - Vision blurred [Unknown]
